FAERS Safety Report 10218266 (Version 3)
Quarter: 2014Q2

REPORT INFORMATION
  Report Type: Report from Study
  Country: US (occurrence: US)
  Receive Date: 20140605
  Receipt Date: 20140630
  Transmission Date: 20141212
  Serious: Yes (Hospitalization)
  Sender: FDA-Public Use
  Company Number: US-BIOGENIDEC-2012BI059311

PATIENT
  Age: 63 Year
  Sex: Male
  Weight: 106 kg

DRUGS (21)
  1. RFIXFC [Suspect]
     Indication: FACTOR IX DEFICIENCY
     Dates: start: 20121018, end: 20121018
  2. RFIXFC [Suspect]
     Indication: FACTOR IX DEFICIENCY
     Dates: start: 20121019, end: 20121019
  3. RFIXFC [Suspect]
     Indication: FACTOR IX DEFICIENCY
     Dates: start: 20121021, end: 20121021
  4. RFIXFC [Suspect]
     Indication: FACTOR IX DEFICIENCY
     Dates: start: 20121023, end: 20121023
  5. RFIXFC [Suspect]
     Indication: FACTOR IX DEFICIENCY
     Dates: start: 20121024, end: 20121024
  6. RFIXFC [Suspect]
     Indication: FACTOR IX DEFICIENCY
     Route: 042
     Dates: start: 20120223
  7. RFIXFC [Suspect]
     Indication: FACTOR IX DEFICIENCY
     Route: 042
     Dates: start: 20121214
  8. AZITHROMYCIN [Concomitant]
     Route: 048
     Dates: start: 20121022
  9. HYDROMORPHONE/BUPIVACAINE [Concomitant]
     Route: 037
  10. SENNOSIDES/DOCUSATE SODIUM [Concomitant]
     Route: 048
  11. TAMSULOSIN [Concomitant]
     Route: 048
     Dates: start: 20121012
  12. CYCLOBENZAPRINE [Concomitant]
     Route: 048
     Dates: start: 20120124
  13. DOCUSATE [Concomitant]
     Route: 048
     Dates: start: 20120817
  14. ESCITALOPRAM [Concomitant]
     Route: 048
     Dates: start: 20120103
  15. FUROSEMIDE [Concomitant]
     Route: 048
     Dates: start: 20121008
  16. LACTULOSE [Concomitant]
     Route: 048
     Dates: start: 20120307
  17. LEVOTHYROXINE [Concomitant]
     Route: 048
     Dates: start: 20120202
  18. MORPHINE [Concomitant]
     Route: 048
     Dates: start: 20120708
  19. SPIRONOLACTONE [Concomitant]
     Route: 048
     Dates: start: 20120703
  20. MARCAINE [Concomitant]
     Dates: start: 20121018
  21. EPINEPHRINE [Concomitant]
     Dates: start: 20121018

REACTIONS (1)
  - Pain [Recovered/Resolved]
